FAERS Safety Report 8577613-9 (Version None)
Quarter: 2012Q3

REPORT INFORMATION
  Report Type: 
  Country: None (occurrence: None)
  Receive Date: 20120807
  Receipt Date: 20120726
  Transmission Date: 20120928
  Serious: Yes (Life-Threatening)
  Sender: FDA-Public Use
  Company Number: FR-FRI-1000037589

PATIENT
  Sex: Female
  Weight: 54 kg

DRUGS (1)
  1. ESCITALOPRAM [Suspect]
     Indication: DEPRESSION
     Dosage: 10 MG
     Route: 048
     Dates: start: 20120529, end: 20120615

REACTIONS (4)
  - OFF LABEL USE [None]
  - DISINHIBITION [None]
  - SUICIDAL IDEATION [None]
  - INTENTIONAL SELF-INJURY [None]
